FAERS Safety Report 24688946 (Version 2)
Quarter: 2024Q4

REPORT INFORMATION
  Report Type: Spontaneous
  Country: AR (occurrence: AR)
  Receive Date: 20241203
  Receipt Date: 20241205
  Transmission Date: 20250114
  Serious: Yes (Other)
  Sender: ROCHE
  Company Number: AR-ROCHE-10000145062

PATIENT
  Age: 53 Year
  Sex: Female

DRUGS (12)
  1. RITUXIMAB [Suspect]
     Active Substance: RITUXIMAB
     Indication: Non-Hodgkin^s lymphoma refractory
     Dosage: R-CHOEP THERAPY
     Route: 065
     Dates: start: 20220701, end: 20221201
  2. RITUXIMAB [Suspect]
     Active Substance: RITUXIMAB
     Dosage: R-GIFOX
     Route: 065
     Dates: start: 20230901, end: 20231201
  3. RITUXIMAB [Suspect]
     Active Substance: RITUXIMAB
     Dosage: DOSE AND FREQUENCY WERE NOT REPORTED
     Route: 065
     Dates: start: 20240301, end: 20240901
  4. CYCLOPHOSPHAMIDE [Concomitant]
     Active Substance: CYCLOPHOSPHAMIDE
     Indication: Non-Hodgkin^s lymphoma
     Dosage: DOSE AND FREQUENCY WERE NOT REPORTED
     Dates: start: 20220701, end: 20221201
  5. DOXORUBICIN [Concomitant]
     Active Substance: DOXORUBICIN
     Indication: Non-Hodgkin^s lymphoma
     Dosage: DOSE AND FREQUENCY WERE NOT REPORTED
     Dates: start: 20220701, end: 20221201
  6. VINCRISTINE [Concomitant]
     Active Substance: VINCRISTINE
     Indication: Non-Hodgkin^s lymphoma
     Dosage: DOSE AND FREQUENCY WERE NOT REPORTED
     Dates: start: 20220701, end: 20221201
  7. ETOPOSIDE [Concomitant]
     Active Substance: ETOPOSIDE
     Indication: Non-Hodgkin^s lymphoma
     Dosage: DOSE AND FREQUENCY WERE NOT REPORTED
     Dates: start: 20220701, end: 20221201
  8. PREDNISONE [Concomitant]
     Active Substance: PREDNISONE
     Indication: Non-Hodgkin^s lymphoma
     Dosage: DOSE AND FREQUENCY WERE NOT REPORTED
     Dates: start: 20220701, end: 20221201
  9. GEMCITABINE [Concomitant]
     Active Substance: GEMCITABINE
     Indication: Non-Hodgkin^s lymphoma
     Dosage: DOSE AND FREQUENCY WERE NOT REPORTED, 3 CYCLES
     Dates: start: 20230901, end: 20231201
  10. IFOSFAMIDE [Concomitant]
     Active Substance: IFOSFAMIDE
     Indication: Non-Hodgkin^s lymphoma
     Dosage: DOSE AND FREQUENCY WERE NOT REPORTED, 3 CYCLES
     Dates: start: 20230901, end: 20231201
  11. OXALIPLATIN [Concomitant]
     Active Substance: OXALIPLATIN
     Indication: Non-Hodgkin^s lymphoma
     Dosage: DOSE AND FREQUENCY WERE NOT REPORTED, 3 CYCLES
     Dates: start: 20230901, end: 20231201
  12. LENALIDOMIDE [Concomitant]
     Active Substance: LENALIDOMIDE
     Indication: Non-Hodgkin^s lymphoma
     Dosage: DOSE AND FREQUENCY WERE NOT REPORTED
     Dates: start: 20240301, end: 20240901

REACTIONS (2)
  - Non-Hodgkin^s lymphoma refractory [Unknown]
  - Gastrointestinal disorder [Unknown]
